FAERS Safety Report 7212204-3 (Version None)
Quarter: 2011Q1

REPORT INFORMATION
  Report Type: 
  Country: None (occurrence: None)
  Receive Date: 20110106
  Receipt Date: 20101222
  Transmission Date: 20110831
  Serious: Yes (Other)
  Sender: FDA-Public Use
  Company Number: US-CELGENEUS-163-21880-07060813

PATIENT
  Age: 13 Year
  Sex: Male
  Weight: 65 kg

DRUGS (4)
  1. ACETAMINOPHEN [Concomitant]
     Route: 048
     Dates: start: 20070604, end: 20070605
  2. REVLIMID [Suspect]
     Route: 048
     Dates: start: 20070530, end: 20070610
  3. REVLIMID [Suspect]
  4. ACETAMINOPHEN [Concomitant]
     Route: 048
     Dates: start: 20070606

REACTIONS (2)
  - URTICARIA [None]
  - HYPOCALCAEMIA [None]
